FAERS Safety Report 4423949-2 (Version None)
Quarter: 2004Q3

REPORT INFORMATION
  Report Type: 
  Country: None (occurrence: None)
  Receive Date: 20040805
  Receipt Date: 20040723
  Transmission Date: 20050211
  Serious: Yes (Hospitalization)
  Sender: FDA-Public Use
  Company Number: 2004041576

PATIENT
  Sex: Male

DRUGS (1)
  1. CETIRIZINE HCL [Suspect]
     Indication: RASH
     Dosage: 20 MG ORAL
     Route: 048
     Dates: start: 20040607, end: 20040610

REACTIONS (4)
  - LOCALISED OEDEMA [None]
  - RASH [None]
  - SENSORY DISTURBANCE [None]
  - URTICARIA [None]
